FAERS Safety Report 10162798 (Version 4)
Quarter: 2014Q2

REPORT INFORMATION
  Report Type: Spontaneous
  Country: US (occurrence: US)
  Receive Date: 20140509
  Receipt Date: 20140606
  Transmission Date: 20141212
  Serious: Yes (Death, Hospitalization, Other)
  Sender: FDA-Public Use
  Company Number: US-BAXTER-2014BAX022018

PATIENT
  Sex: Male

DRUGS (1)
  1. DIANEAL LOW CALCIUM (ULTRABAG) [Suspect]
     Indication: PERITONEAL DIALYSIS
     Route: 033
     Dates: end: 20140430

REACTIONS (7)
  - Cardiac arrest [Fatal]
  - Cardiac failure [Fatal]
  - Localised infection [Recovering/Resolving]
  - Staphylococcal infection [Recovering/Resolving]
  - Pleural effusion [Recovering/Resolving]
  - Unresponsive to stimuli [Unknown]
  - Intestinal ischaemia [Unknown]
